FAERS Safety Report 8948216 (Version 1)
Quarter: 2012Q4

REPORT INFORMATION
  Report Type: Spontaneous
  Country: US (occurrence: None)
  Receive Date: 20121203
  Receipt Date: 20121203
  Transmission Date: 20130627
  Serious: Yes (Other)
  Sender: FDA-Public Use
  Company Number: None

PATIENT
  Age: 44 Year
  Sex: Female
  Weight: 127.46 kg

DRUGS (3)
  1. OMEPRAZOLE 20MG TWICE DAILY [Suspect]
     Indication: GERD
     Route: 048
     Dates: start: 20080903, end: 20090413
  2. PANTOPRAZOLE 60MG [Concomitant]
  3. ACIPTIER 4G [Concomitant]

REACTIONS (1)
  - No therapeutic response [None]
